FAERS Safety Report 4378471-9 (Version None)
Quarter: 2004Q2

REPORT INFORMATION
  Report Type: 
  Country: None (occurrence: None)
  Receive Date: 20040609
  Receipt Date: 20040526
  Transmission Date: 20050107
  Serious: Yes (Death)
  Sender: FDA-Public Use
  Company Number: S04-USA-00959-01

PATIENT
  Age: 82 Year
  Sex: Male

DRUGS (9)
  1. NAMENDA [Suspect]
     Indication: DEMENTIA ALZHEIMER'S TYPE
     Dosage: 5 MG QD PO
     Route: 048
     Dates: start: 20040304, end: 20040315
  2. NAMENDA [Suspect]
     Indication: DEMENTIA ALZHEIMER'S TYPE
     Dosage: 10 MG QD PO
     Route: 048
     Dates: start: 20031225, end: 20040303
  3. ARICEPT [Concomitant]
  4. LISINOPRIL [Concomitant]
  5. GLIPIZIDE [Concomitant]
  6. MEDICATION FOR HALLUCINATIONS [Concomitant]
  7. SYNTHROID (ELVOTHYROXINE SODIUM) [Concomitant]
  8. TACRINE [Concomitant]
  9. IMIPRAMINE [Concomitant]

REACTIONS (6)
  - CLOSTRIDIAL INFECTION [None]
  - DIABETIC COMA [None]
  - FATIGUE [None]
  - HYPERSOMNIA [None]
  - HYPOGLYCAEMIA [None]
  - PNEUMONIA ASPIRATION [None]
